FAERS Safety Report 23929971 (Version 1)
Quarter: 2024Q2

REPORT INFORMATION
  Report Type: Spontaneous
  Country: US (occurrence: US)
  Receive Date: 20240601
  Receipt Date: 20240601
  Transmission Date: 20240716
  Serious: No
  Sender: FDA-Public Use
  Company Number: US-AUROBINDO-AUR-APL-2024-011613

PATIENT
  Age: 71 Year
  Sex: Female
  Weight: 95.254 kg

DRUGS (1)
  1. DORZOLAMIDE HYDROCHLORIDE\TIMOLOL MALEATE [Suspect]
     Active Substance: DORZOLAMIDE HYDROCHLORIDE\TIMOLOL MALEATE
     Indication: Glaucoma
     Dosage: UNK (ONE DROP IN EACH EYE TWICE IN A DAY)
     Route: 047
     Dates: start: 20240104

REACTIONS (3)
  - Product dose omission issue [Unknown]
  - Product use complaint [Unknown]
  - Product packaging issue [Unknown]

NARRATIVE: CASE EVENT DATE: 20240104
